FAERS Safety Report 6956430-7 (Version None)
Quarter: 2010Q3

REPORT INFORMATION
  Report Type: 
  Country: None (occurrence: None)
  Receive Date: 20100830
  Receipt Date: 20100818
  Transmission Date: 20110219
  Serious: Yes (Hospitalization)
  Sender: FDA-Public Use
  Company Number: B0671743A

PATIENT
  Age: 80 Year
  Sex: Male

DRUGS (15)
  1. LAMICTAL [Suspect]
     Indication: EPILEPSY
     Dosage: 25MG PER DAY
     Route: 048
     Dates: start: 20100402, end: 20100414
  2. ASPIRIN [Suspect]
     Indication: ARRHYTHMIA SUPRAVENTRICULAR
     Dosage: 100MG PER DAY
     Route: 048
     Dates: start: 20090101, end: 20100414
  3. ROCEPHIN [Suspect]
     Indication: PNEUMONIA
     Route: 040
     Dates: start: 20100402, end: 20100412
  4. CONCOR [Concomitant]
     Dosage: 2.5MG PER DAY
     Route: 048
  5. APROVEL [Concomitant]
     Dosage: 150MG PER DAY
     Route: 048
     Dates: start: 20100402
  6. TOREM [Concomitant]
     Dosage: 10MG TWICE PER DAY
  7. ZYLORIC [Concomitant]
     Route: 048
  8. METOLAZONE [Concomitant]
     Dosage: 2.5MG PER DAY
     Dates: start: 20100405, end: 20100405
  9. ACETAMINOPHEN [Concomitant]
     Route: 048
  10. URBANYL [Concomitant]
     Indication: EPILEPSY
     Route: 048
  11. KLACID [Concomitant]
     Indication: PNEUMONIA
     Dosage: 250MG TWICE PER DAY
     Route: 042
     Dates: start: 20100402, end: 20100412
  12. PANTOPRAZOLE SODIUM [Concomitant]
     Dates: start: 20100403
  13. FRAGMIN [Concomitant]
     Dosage: 2500IU PER DAY
     Dates: start: 20100409, end: 20100419
  14. PERENTEROL [Concomitant]
     Dosage: 1500MG PER DAY
     Route: 048
     Dates: start: 20100409, end: 20100422
  15. XYZAL [Concomitant]
     Dosage: 5MG PER DAY
     Route: 048
     Dates: start: 20100409, end: 20100422

REACTIONS (7)
  - EPISTAXIS [None]
  - GASTRIC ULCER [None]
  - GASTROINTESTINAL HAEMORRHAGE [None]
  - HAEMORRHAGIC ANAEMIA [None]
  - MELAENA [None]
  - PETECHIAE [None]
  - THROMBOCYTOPENIA [None]
